FAERS Safety Report 8061666-0 (Version None)
Quarter: 2012Q1

REPORT INFORMATION
  Report Type: 
  Country: None (occurrence: None)
  Receive Date: 20120123
  Receipt Date: 20120110
  Transmission Date: 20120608
  Serious: Yes (Hospitalization)
  Sender: FDA-Public Use
  Company Number: DE-BIOGENIDEC-2011BI031369

PATIENT
  Age: 52 Year
  Sex: Female

DRUGS (5)
  1. BALCOFEN [Concomitant]
     Indication: MUSCLE SPASTICITY
     Route: 048
     Dates: start: 20091221
  2. TOLTERODINE TARTRATE [Concomitant]
     Indication: URINARY INCONTINENCE
     Route: 048
     Dates: start: 20100301, end: 20110628
  3. IMIPRAMINE [Concomitant]
     Route: 048
     Dates: start: 20030101
  4. ZUIDEX [Concomitant]
     Indication: ABSCESS STERILE
  5. TYSABRI [Suspect]
     Indication: RELAPSING-REMITTING MULTIPLE SCLEROSIS
     Route: 042
     Dates: start: 20091217

REACTIONS (1)
  - ABSCESS STERILE [None]
